FAERS Safety Report 9224537 (Version 1)
Quarter: 2013Q1

REPORT INFORMATION
  Report Type: Spontaneous
  Country: US (occurrence: None)
  Receive Date: 20120917
  Receipt Date: 20120917
  Transmission Date: 20140127
  Serious: Yes (Other)
  Sender: FDA-Public Use
  Company Number: 1000030850

PATIENT
  Age: 44 Year
  Sex: Male

DRUGS (4)
  1. CELEXA (CITALOPRAM HYDROBROMIDE) [Suspect]
     Indication: DEPRESSION
     Route: 048
     Dates: start: 2000, end: 201205
  2. CELEXA (CITALOPRAM HYDROBROMIDE) [Suspect]
     Indication: DEPRESSION
     Route: 048
     Dates: start: 201205, end: 201206
  3. CLINDAMYCIN [Suspect]
     Indication: GINGIVAL INFECTION
     Dosage: 1500 MG (500 MG,3 IN 1 D)
     Route: 048
     Dates: start: 201204, end: 201204
  4. RITALIN (METHYLPHENIDATE HYDROCHLORIDE) (METHYLPHENIDATE HYDROCHLORIDE) [Concomitant]

REACTIONS (5)
  - Serotonin syndrome [None]
  - Depression [None]
  - Migraine [None]
  - Abdominal pain upper [None]
  - Diarrhoea [None]
